FAERS Safety Report 4353889-9 (Version None)
Quarter: 2004Q2

REPORT INFORMATION
  Report Type: 
  Country: None (occurrence: None)
  Receive Date: 20040506
  Receipt Date: 20040315
  Transmission Date: 20050107
  Serious: Yes (Life-Threatening, Hospitalization)
  Sender: FDA-Public Use
  Company Number: PHBS2004JP03621

PATIENT
  Age: 20 Year
  Sex: Male
  Weight: 50 kg

DRUGS (8)
  1. VOLTAREN [Suspect]
     Indication: PYREXIA
     Dosage: 25 MG, BID
     Route: 054
     Dates: start: 20040312, end: 20040313
  2. SAWACILLIN [Suspect]
     Indication: ANTIPYRESIS
     Dosage: 750 MG/DAY
     Route: 048
     Dates: start: 20040312, end: 20040312
  3. CEFZON [Suspect]
     Indication: ANTIPYRESIS
     Dosage: 300 MG/DAY
     Route: 048
     Dates: start: 20040310, end: 20040312
  4. LOXONIN [Concomitant]
     Indication: PYREXIA
     Dosage: 180 MG/DAY
     Route: 048
     Dates: start: 20040310, end: 20040312
  5. METILON [Concomitant]
     Indication: PYREXIA
     Dosage: 1 DF/DAY
     Route: 030
     Dates: start: 20040310, end: 20040310
  6. PL GRAN. [Suspect]
     Indication: NASOPHARYNGITIS
     Dosage: 3 G/DAY
     Route: 048
     Dates: start: 20040312, end: 20040312
  7. MUCOSTA [Concomitant]
     Indication: PROPHYLAXIS AGAINST GASTROINTESTINAL ULCER
     Dosage: 300 MG/DAY
     Route: 048
     Dates: start: 20040312, end: 20040312
  8. SELBEX [Concomitant]
     Indication: PROPHYLAXIS AGAINST GASTROINTESTINAL ULCER
     Dosage: 150 MG/DAY
     Route: 048
     Dates: start: 20040310, end: 20040312

REACTIONS (9)
  - ACUTE RESPIRATORY DISTRESS SYNDROME [None]
  - ACUTE RESPIRATORY FAILURE [None]
  - BLOOD PRESSURE SYSTOLIC DECREASED [None]
  - CYANOSIS [None]
  - DYSPNOEA [None]
  - FEELING ABNORMAL [None]
  - HYPOXIA [None]
  - LUNG INFILTRATION [None]
  - VIRAL INFECTION [None]
